FAERS Safety Report 7908749-0 (Version None)
Quarter: 2011Q4

REPORT INFORMATION
  Report Type: 
  Country: None (occurrence: None)
  Receive Date: 20111111
  Receipt Date: 20111107
  Transmission Date: 20120403
  Serious: No
  Sender: FDA-Public Use
  Company Number: US-PFIZER INC-2011273028

PATIENT
  Age: 66 Year
  Sex: Female

DRUGS (8)
  1. WELLBUTRIN [Concomitant]
     Indication: DEPRESSION
     Dosage: 150 MG, UNK
     Route: 048
  2. GEODON [Concomitant]
     Indication: PSYCHOTIC DISORDER
     Dosage: 40 MG, UNK
     Route: 048
  3. SYNTHROID [Concomitant]
     Indication: HYPOTHYROIDISM
     Dosage: 50 UG, UNK
     Route: 048
  4. MORPHINE [Suspect]
     Dosage: UNK
  5. ZOCOR [Concomitant]
     Indication: BLOOD CHOLESTEROL INCREASED
     Dosage: 10 MG, UNK
     Route: 048
  6. INDERAL [Concomitant]
     Indication: TREMOR
     Dosage: 60 MG, UNK
     Route: 048
  7. PRIMIDONE [Concomitant]
     Indication: TREMOR
     Dosage: (50 AND 75 MG)
     Route: 048
  8. COGENTIN [Suspect]
     Dosage: UNK

REACTIONS (1)
  - DRUG HYPERSENSITIVITY [None]
